FAERS Safety Report 9352273 (Version 2)
Quarter: 2013Q3

REPORT INFORMATION
  Report Type: Spontaneous
  Country: US (occurrence: US)
  Receive Date: 20130617
  Receipt Date: 20130725
  Transmission Date: 20140515
  Serious: Yes (Hospitalization)
  Sender: FDA-Public Use
  Company Number: US-B.I. PHARMACEUTICALS,INC./RIDGEFIELD-2013-BI-16901BP

PATIENT
  Sex: Male

DRUGS (12)
  1. COMBIVENT [Suspect]
     Indication: EMPHYSEMA
     Dosage: STRENGTH: 18 MCG / 103 MCG; DAILY DOSE: 288 MCG/ 1648 MCG
     Route: 055
     Dates: start: 2010, end: 20130520
  2. COMBIVENT [Suspect]
     Indication: CHRONIC OBSTRUCTIVE PULMONARY DISEASE
     Dosage: SRENGTH:18MCG/103MCG DAILY DOSE:144MCG/824MCG
     Route: 055
     Dates: start: 2006
  3. EFFIENT [Concomitant]
     Dosage: 10 MG
     Route: 048
  4. MUCINEX [Concomitant]
     Route: 048
  5. VALIUM [Concomitant]
     Dosage: 30 MG
     Route: 048
  6. ISOSORBIDE MONONITRATE [Concomitant]
     Dosage: 30 MG
     Route: 048
  7. HYDROCODONE [Concomitant]
     Indication: BACK INJURY
     Route: 048
  8. PRAVASTATIN [Concomitant]
     Dosage: 80 MG
     Route: 048
  9. ASPIRIN [Concomitant]
     Dosage: 81 MG
     Route: 048
  10. PHENOBARBITAL [Concomitant]
     Indication: RESTLESS LEGS SYNDROME
     Route: 048
  11. COREG [Concomitant]
     Indication: HYPERTENSION
     Dosage: 12.5 MG
     Route: 048
  12. NITROGLYCERIN [Concomitant]

REACTIONS (5)
  - Myocardial infarction [Recovered/Resolved]
  - Coronary artery occlusion [Recovered/Resolved]
  - Dyspnoea [Recovered/Resolved]
  - Myocardial infarction [Recovered/Resolved]
  - Cardiac disorder [Recovered/Resolved]
